FAERS Safety Report 6518713-4 (Version None)
Quarter: 2009Q4

REPORT INFORMATION
  Report Type: 
  Country: None (occurrence: None)
  Receive Date: 20091228
  Receipt Date: 20091215
  Transmission Date: 20100525
  Serious: Yes (Other)
  Sender: FDA-Public Use
  Company Number: PHEH2009US11814

PATIENT
  Sex: Female

DRUGS (1)
  1. LOPRESSOR [Suspect]
     Dosage: UNK, UNK
     Route: 065

REACTIONS (7)
  - CATARACT [None]
  - CHEST PAIN [None]
  - CONFUSIONAL STATE [None]
  - FIBROMYALGIA [None]
  - HYPERTENSION [None]
  - RETINAL DETACHMENT [None]
  - VISUAL IMPAIRMENT [None]
